FAERS Safety Report 13105320 (Version 3)
Quarter: 2017Q1

REPORT INFORMATION
  Report Type: Spontaneous
  Country: US (occurrence: US)
  Receive Date: 20170111
  Receipt Date: 20170209
  Transmission Date: 20170428
  Serious: No
  Sender: FDA-Public Use
  Company Number: US-PFIZER INC-2017009098

PATIENT
  Age: 61 Year
  Sex: Male
  Weight: 63.49 kg

DRUGS (10)
  1. CADUET [Concomitant]
     Active Substance: AMLODIPINE BESYLATE\ATORVASTATIN CALCIUM
     Indication: BLOOD CHOLESTEROL ABNORMAL
  2. VIAGRA [Suspect]
     Active Substance: SILDENAFIL CITRATE
     Indication: ERECTILE DYSFUNCTION
     Dosage: 50 MG, WEEKLY [ONCE A WEEK AT NIGHT]
     Route: 048
     Dates: start: 201609
  3. VIAGRA [Suspect]
     Active Substance: SILDENAFIL CITRATE
     Dosage: 50 MG, AS NEEDED
     Dates: start: 20160819
  4. CADUET [Concomitant]
     Active Substance: AMLODIPINE BESYLATE\ATORVASTATIN CALCIUM
     Indication: BLOOD PRESSURE MEASUREMENT
     Dosage: UNK, 1X/DAY (AMLODIPINE BESILATE-2.5MG, ATORVASTATIN CALCIUM-10MG)
     Dates: start: 2014
  5. BUPROPION. [Concomitant]
     Active Substance: BUPROPION
     Indication: PARKINSON^S DISEASE
     Dosage: 300 MG, 1X/DAY
     Dates: start: 2014
  6. CARBIDOPA/LEVODOPA [Concomitant]
     Indication: PARKINSON^S DISEASE
     Dosage: 1 DF, 3X/DAY [CARBIDOPA: 25MG]/[LEVODOPA: 250MG]
     Route: 048
     Dates: start: 2014
  7. BUPROPION. [Concomitant]
     Active Substance: BUPROPION
     Indication: ANXIETY
  8. STOOL SOFTENER [Concomitant]
     Indication: CONSTIPATION
     Dosage: 100 MG, AS NEEDED (1-3 PILLS)
  9. LEVOTHYROXINE. [Concomitant]
     Active Substance: LEVOTHYROXINE
     Indication: THYROID DISORDER
     Dosage: 0.5 MG, 1X/DAY
     Dates: start: 2014
  10. ENTACAPONE. [Concomitant]
     Active Substance: ENTACAPONE
     Indication: PARKINSON^S DISEASE
     Dosage: 200 MG, 3X/DAY [TAKING ENTACAPONE IN CONJUNCTION WITH CARBIDOPA/LEVODOPA]
     Route: 048
     Dates: start: 2014

REACTIONS (2)
  - Skin discolouration [Not Recovered/Not Resolved]
  - Erection increased [Not Recovered/Not Resolved]

NARRATIVE: CASE EVENT DATE: 20160819
